FAERS Safety Report 16299535 (Version 2)
Quarter: 2024Q3

REPORT INFORMATION
  Report Type: Spontaneous
  Country: DK (occurrence: DK)
  Receive Date: 20190510
  Receipt Date: 20240829
  Transmission Date: 20241016
  Serious: Yes (Death, Hospitalization, Other)
  Sender: ACCORD
  Company Number: None

PATIENT
  Age: 17 Year
  Sex: Male

DRUGS (11)
  1. DOCETAXEL [Suspect]
     Active Substance: DOCETAXEL\DOCETAXEL ANHYDROUS
     Indication: Hepatocellular carcinoma
     Dosage: GIVEN ON DAY 1 OF A 3-WEEK CYCLE
     Route: 065
  2. CISPLATIN [Suspect]
     Active Substance: CISPLATIN
     Indication: Hepatocellular carcinoma
     Dosage: 100 MG/M2, ALSO RECEIVED 70 MG/M2(INTERVAL 3 WEEKS)
     Route: 065
  3. GEMCITABINE [Suspect]
     Active Substance: GEMCITABINE
     Indication: Hepatocellular carcinoma
     Dosage: GIVEN WITH OXALIPLATIN,1000 MG/M2 EVERY 2ND WEEK
     Route: 065
  4. OXALIPLATIN [Suspect]
     Active Substance: OXALIPLATIN
     Indication: Hepatocellular carcinoma
     Route: 065
  5. SORAFENIB [Suspect]
     Active Substance: SORAFENIB
     Indication: Hepatocellular carcinoma
     Dosage: 400 MG, BID,ALSO RECEIVED AND 200 MG,
     Route: 048
  6. TAXOL [Suspect]
     Active Substance: PACLITAXEL
     Indication: Hepatocellular carcinoma
     Dosage: 175 MG/M2 ON DAY 1 IN A 3-WEEK CYCLE
     Route: 065
  7. ERLOTINIB [Concomitant]
     Active Substance: ERLOTINIB
     Indication: Hepatocellular carcinoma
     Route: 048
  8. PEGFILGRASTIM [Concomitant]
     Active Substance: PEGFILGRASTIM
     Indication: Hepatocellular carcinoma
     Dosage: ON DAY 2 OF EACH CYCLE
     Route: 058
  9. CISPLATIN [Suspect]
     Active Substance: CISPLATIN
     Indication: Hepatocellular carcinoma
     Dosage: GIVEN AS FIVE SERIES OF COMBINATION THERAPY (GCT THEREPY) GIVEN ON DAY 1 OF A 3-WEEK CYCLE
     Route: 065
  10. SORAFENIB [Suspect]
     Active Substance: SORAFENIB
     Indication: Hepatocellular carcinoma
     Route: 048
  11. PEGFILGRASTIM [Concomitant]
     Active Substance: PEGFILGRASTIM
     Indication: Supportive care
     Dosage: 4 MG, CYCLIC, ON DAY 2 OF EACH CYCLE
     Route: 058

REACTIONS (15)
  - Vomiting [Recovered/Resolved]
  - Tinnitus [Recovered/Resolved]
  - Pruritus [Unknown]
  - Diarrhoea [Recovered/Resolved]
  - Alopecia [Recovered/Resolved]
  - Rash [Unknown]
  - Anaemia [Recovered/Resolved]
  - Drug ineffective [Unknown]
  - Hepatic enzyme increased [Unknown]
  - Malignant neoplasm progression [Fatal]
  - Hepatocellular carcinoma [Fatal]
  - Decreased appetite [Recovered/Resolved]
  - General physical health deterioration [Unknown]
  - Paraesthesia [Recovered/Resolved]
  - Neutropenia [Unknown]
